FAERS Safety Report 22030771 (Version 2)
Quarter: 2023Q2

REPORT INFORMATION
  Report Type: Spontaneous
  Country: US (occurrence: US)
  Receive Date: 20230223
  Receipt Date: 20230426
  Transmission Date: 20230722
  Serious: No
  Sender: FDA-Public Use
  Company Number: US-ALKERMES INC.-ALK-2023-000756

PATIENT
  Sex: Male

DRUGS (1)
  1. VIVITROL [Suspect]
     Active Substance: NALTREXONE
     Indication: Drug dependence
     Dosage: 380 MILLIGRAM, Q4WK
     Route: 030
     Dates: start: 20230131

REACTIONS (3)
  - Swelling [Recovered/Resolved]
  - Muscle spasms [Recovered/Resolved]
  - Back pain [Unknown]
